FAERS Safety Report 6154970-4 (Version None)
Quarter: 2009Q2

REPORT INFORMATION
  Report Type: 
  Country: None (occurrence: None)
  Receive Date: 20090410
  Receipt Date: 20090406
  Transmission Date: 20091009
  Serious: Yes (Hospitalization)
  Sender: FDA-Public Use
  Company Number: 2009SP001677

PATIENT
  Age: 14 Year
  Sex: Female
  Weight: 45 kg

DRUGS (3)
  1. CLARITIN [Suspect]
     Indication: RHINITIS ALLERGIC
     Dosage: 10 MG; PO
     Route: 048
     Dates: start: 20081016, end: 20081021
  2. DASEN (SERRAPEPTASE) [Suspect]
     Indication: UPPER RESPIRATORY TRACT INFLAMMATION
     Dosage: 10 MG;TID;PO
     Route: 048
     Dates: start: 20081016, end: 20081021
  3. CEFDINIR [Suspect]
     Indication: UPPER RESPIRATORY TRACT INFLAMMATION
     Dosage: 100 MG;ONCE;PO
     Route: 048
     Dates: start: 20081123, end: 20081123

REACTIONS (8)
  - AUTOIMMUNE DISORDER [None]
  - INFECTION [None]
  - KIDNEY FIBROSIS [None]
  - TOOTHACHE [None]
  - TREATMENT NONCOMPLIANCE [None]
  - TUBULOINTERSTITIAL NEPHRITIS [None]
  - UPPER RESPIRATORY TRACT INFLAMMATION [None]
  - UVEITIS [None]
